FAERS Safety Report 10768154 (Version 1)
Quarter: 2015Q1

REPORT INFORMATION
  Report Type: Spontaneous
  Country: US (occurrence: US)
  Receive Date: 20150206
  Receipt Date: 20150206
  Transmission Date: 20150721
  Serious: Yes (Hospitalization)
  Sender: FDA-Public Use
  Company Number: US-BRISTOL-MYERS SQUIBB COMPANY-BMS-2015-006136

PATIENT
  Age: 68 Year
  Sex: Male

DRUGS (2)
  1. YERVOY [Suspect]
     Active Substance: IPILIMUMAB
     Indication: MALIGNANT MELANOMA
     Dosage: 225 MG, UNK
     Route: 065
     Dates: start: 20141205
  2. YERVOY [Suspect]
     Active Substance: IPILIMUMAB

REACTIONS (3)
  - Colitis [Unknown]
  - Weight decreased [Unknown]
  - Urine output increased [Unknown]

NARRATIVE: CASE EVENT DATE: 20150104
